FAERS Safety Report 10595347 (Version 2)
Quarter: 2014Q4

REPORT INFORMATION
  Report Type: Report from Study
  Country: BR (occurrence: BR)
  Receive Date: 20141120
  Receipt Date: 20141120
  Transmission Date: 20150529
  Serious: Yes (Death, Hospitalization)
  Sender: FDA-Public Use
  Company Number: BR-BAYER-2014-100852

PATIENT
  Age: 66 Year
  Sex: Male
  Weight: 35 kg

DRUGS (5)
  1. ENALAPRIL [Concomitant]
     Active Substance: ENALAPRIL
     Dosage: UNK
     Dates: end: 201408
  2. NEXAVAR [Suspect]
     Active Substance: SORAFENIB
     Indication: HEPATIC NEOPLASM
     Dosage: 2 DF, BID
     Route: 048
     Dates: start: 201403, end: 20140614
  3. NEXAVAR [Suspect]
     Active Substance: SORAFENIB
     Indication: HEPATIC NEOPLASM
     Dosage: 2 DF, QD
     Route: 048
     Dates: start: 20140615, end: 201410
  4. METFORMIN [Concomitant]
     Active Substance: METFORMIN HYDROCHLORIDE
     Dosage: UNK
     Dates: end: 201408
  5. GLICLAZIDE [Concomitant]
     Active Substance: GLICLAZIDE
     Indication: DIABETES MELLITUS
     Dosage: 2 DF, QD
     Route: 048
     Dates: start: 2007

REACTIONS (11)
  - Hepatic cancer [Fatal]
  - Asthenia [Recovering/Resolving]
  - Blood glucose decreased [None]
  - Fluid intake reduced [Not Recovered/Not Resolved]
  - Fatigue [Recovering/Resolving]
  - Aphagia [Not Recovered/Not Resolved]
  - Pleurisy [Recovered/Resolved]
  - Malaise [Recovering/Resolving]
  - Blood pressure decreased [None]
  - Asthenia [Not Recovered/Not Resolved]
  - Dyspnoea [Recovering/Resolving]

NARRATIVE: CASE EVENT DATE: 201406
